FAERS Safety Report 11819275 (Version 1)
Quarter: 2015Q4

REPORT INFORMATION
  Report Type: Spontaneous
  Country: US (occurrence: None)
  Receive Date: 20151209
  Receipt Date: 20151209
  Transmission Date: 20160305
  Serious: Yes (Hospitalization, Other)
  Sender: FDA-Public Use
  Company Number: None

PATIENT
  Age: 61 Year
  Sex: Female
  Weight: 62.6 kg

DRUGS (12)
  1. ZUBSOLV [Suspect]
     Active Substance: BUPRENORPHINE HYDROCHLORIDE\NALOXONE HYDROCHLORIDE
     Indication: SCOLIOSIS
     Dosage: STRENGTH: 5.7 ZUBSOLVE
     Route: 060
     Dates: start: 2013, end: 201511
  2. ZUBSOLV [Suspect]
     Active Substance: BUPRENORPHINE HYDROCHLORIDE\NALOXONE HYDROCHLORIDE
     Indication: INTERVERTEBRAL DISC PROTRUSION
     Dosage: STRENGTH: 5.7 ZUBSOLVE
     Route: 060
     Dates: start: 2013, end: 201511
  3. VITAMIN D3 [Concomitant]
     Active Substance: CHOLECALCIFEROL
  4. ZUBSOLV [Suspect]
     Active Substance: BUPRENORPHINE HYDROCHLORIDE\NALOXONE HYDROCHLORIDE
     Indication: ARTHRITIS
     Dosage: STRENGTH: 5.7 ZUBSOLVE
     Route: 060
     Dates: start: 2013, end: 201511
  5. NADOLOL. [Concomitant]
     Active Substance: NADOLOL
  6. MULTI VIT [Concomitant]
  7. VITAMIN B12 [Concomitant]
     Active Substance: CYANOCOBALAMIN
  8. CLONIDINE. [Concomitant]
     Active Substance: CLONIDINE
  9. NEURONTIN [Concomitant]
     Active Substance: GABAPENTIN
  10. PROTONIX [Concomitant]
     Active Substance: PANTOPRAZOLE SODIUM
  11. IRON [Concomitant]
     Active Substance: IRON
  12. ZOFRAN [Concomitant]
     Active Substance: ONDANSETRON HYDROCHLORIDE

REACTIONS (5)
  - Fall [None]
  - Screaming [None]
  - Balance disorder [None]
  - Paraesthesia [None]
  - Anxiety [None]

NARRATIVE: CASE EVENT DATE: 201508
